FAERS Safety Report 9815570 (Version 2)
Quarter: 2014Q1

REPORT INFORMATION
  Report Type: Spontaneous
  Country: US (occurrence: US)
  Receive Date: 20140114
  Receipt Date: 20140212
  Transmission Date: 20141002
  Serious: Yes (Other)
  Sender: FDA-Public Use
  Company Number: US-SA-2014SA004963

PATIENT
  Age: 72 Year
  Sex: Female
  Weight: 54 kg

DRUGS (4)
  1. HECTOROL [Suspect]
     Indication: BONE DISORDER
     Route: 042
     Dates: start: 20131231, end: 20140106
  2. EPOGEN [Concomitant]
     Indication: ANAEMIA
     Dosage: DOSE:10000 UNIT(S)
     Route: 042
  3. HEPARIN SODIUM [Concomitant]
     Dosage: DOSE:5000 UNIT(S)
     Route: 040
  4. VENOFER [Concomitant]
     Indication: ANAEMIA
     Route: 042

REACTIONS (4)
  - Unresponsive to stimuli [Recovered/Resolved]
  - Cough [Recovered/Resolved]
  - Hypertonia [Recovered/Resolved]
  - Off label use [Unknown]
